FAERS Safety Report 4896978-2 (Version None)
Quarter: 2006Q1

REPORT INFORMATION
  Report Type: 
  Country: None (occurrence: None)
  Receive Date: 20060127
  Receipt Date: 20060111
  Transmission Date: 20060701
  Serious: Yes (Other)
  Sender: FDA-Public Use
  Company Number: GBR-2006-0002066

PATIENT
  Age: 70 Year
  Sex: Female

DRUGS (2)
  1. OXYCODONE HCL [Suspect]
     Dosage: 40 MG, BID, UNKNOWN
     Route: 065
  2. FLUVOXAMINE MALEATE [Concomitant]

REACTIONS (1)
  - SEROTONIN SYNDROME [None]
